FAERS Safety Report 19770908 (Version 1)
Quarter: 2021Q3

REPORT INFORMATION
  Report Type: Spontaneous
  Country: US (occurrence: US)
  Receive Date: 20210901
  Receipt Date: 20210901
  Transmission Date: 20211014
  Serious: No
  Sender: FDA-Public Use
  Company Number: US-SA-2021SA287994

PATIENT
  Age: 73 Year
  Sex: Male

DRUGS (12)
  1. CLOPIDOGREL [Concomitant]
     Active Substance: CLOPIDOGREL BISULFATE
  2. FLUTICASONE. [Concomitant]
     Active Substance: FLUTICASONE
  3. AZELASTINE. [Concomitant]
     Active Substance: AZELASTINE HYDROCHLORIDE
  4. DUPIXENT [Suspect]
     Active Substance: DUPILUMAB
     Indication: PSORIASIS
     Dosage: 300 MG, QOW
     Route: 058
     Dates: start: 20200515
  5. TRAMADOL HCL [Concomitant]
     Active Substance: TRAMADOL HYDROCHLORIDE
  6. AZITHROMYCIN ANHYDROUS. [Concomitant]
     Active Substance: AZITHROMYCIN ANHYDROUS
  7. PREDNISONE. [Concomitant]
     Active Substance: PREDNISONE
  8. FUROSEMIDE. [Concomitant]
     Active Substance: FUROSEMIDE
  9. DULOXETINE. [Concomitant]
     Active Substance: DULOXETINE
  10. ATORVASTATIN [Concomitant]
     Active Substance: ATORVASTATIN
  11. CLINDAMYCIN. [Concomitant]
     Active Substance: CLINDAMYCIN
  12. SPIRONOLACTONE. [Concomitant]
     Active Substance: SPIRONOLACTONE

REACTIONS (4)
  - Product use in unapproved indication [Unknown]
  - Psoriasis [Not Recovered/Not Resolved]
  - Gallbladder operation [Unknown]
  - Product dose omission issue [Unknown]

NARRATIVE: CASE EVENT DATE: 20200515
